FAERS Safety Report 8509813-8 (Version None)
Quarter: 2012Q3

REPORT INFORMATION
  Report Type: 
  Country: None (occurrence: None)
  Receive Date: 20120703
  Receipt Date: 20120618
  Transmission Date: 20120928
  Serious: Yes (Hospitalization)
  Sender: FDA-Public Use
  Company Number: US-2012-10039

PATIENT
  Age: 44 Year
  Sex: Female
  Weight: 60 kg

DRUGS (3)
  1. PERINDOPRIL (PERINDOPRIL ERBUMINE) [Concomitant]
  2. OPC-41061 (TOLVAPTAN) TABLET, 15MG MILLIGRAM(S) [Suspect]
     Indication: CONGENITAL CYSTIC KIDNEY DISEASE
     Dosage: 120 MG MILLIGRAM(S), DAILY DOSE, ORAL
     Route: 048
     Dates: start: 20111112, end: 20120111
  3. MAGNESIUM (ALUMINIUM HYDROXIDE, MAGNESIUM HYDROXIDE) [Concomitant]

REACTIONS (14)
  - GALLBLADDER DISORDER [None]
  - HEPATITIS CHOLESTATIC [None]
  - BLOOD CREATININE INCREASED [None]
  - HEPATITIS A VIRUS TEST POSITIVE [None]
  - BLOOD GLUCOSE INCREASED [None]
  - BLOOD ALBUMIN DECREASED [None]
  - BLOOD BICARBONATE DECREASED [None]
  - HEPATIC CYST [None]
  - VARICELLA VIRUS TEST POSITIVE [None]
  - NAUSEA [None]
  - CYTOLYTIC HEPATITIS [None]
  - ABDOMINAL PAIN UPPER [None]
  - POLYURIA [None]
  - HEPATIC NECROSIS [None]
